FAERS Safety Report 18591159 (Version 1)
Quarter: 2020Q4

REPORT INFORMATION
  Report Type: Spontaneous
  Country: CN (occurrence: CN)
  Receive Date: 20201208
  Receipt Date: 20201208
  Transmission Date: 20210114
  Serious: Yes (Hospitalization)
  Sender: FDA-Public Use
  Company Number: CN-PFIZER INC-2020473529

PATIENT
  Age: 55 Year
  Sex: Male
  Weight: 85 kg

DRUGS (2)
  1. NIFEDIPINE. [Concomitant]
     Active Substance: NIFEDIPINE
     Indication: BLOOD PRESSURE INCREASED
     Dosage: 10 MG, 2X/DAY
     Route: 048
     Dates: start: 20200902, end: 20200921
  2. LIPITOR [Suspect]
     Active Substance: ATORVASTATIN CALCIUM
     Indication: LIPIDS INCREASED
     Dosage: 20 MG, 1X/DAY
     Route: 048
     Dates: start: 20200902, end: 20200923

REACTIONS (5)
  - Chromaturia [Unknown]
  - Transaminases increased [Unknown]
  - Faeces discoloured [Unknown]
  - Jaundice [Recovering/Resolving]
  - Blood bilirubin increased [Unknown]

NARRATIVE: CASE EVENT DATE: 20200921
